FAERS Safety Report 10583549 (Version 1)
Quarter: 2014Q4

REPORT INFORMATION
  Report Type: Spontaneous
  Country: IT (occurrence: IT)
  Receive Date: 20141114
  Receipt Date: 20141114
  Transmission Date: 20150529
  Serious: Yes (Hospitalization)
  Sender: FDA-Public Use
  Company Number: IT-JNJFOC-20141104093

PATIENT
  Age: 82 Year
  Sex: Male

DRUGS (10)
  1. PROPYLTHIOURACIL. [Concomitant]
     Active Substance: PROPYLTHIOURACIL
     Indication: HYPERTHYROIDISM
     Route: 065
     Dates: start: 20060601, end: 20141027
  2. SEROQUEL [Concomitant]
     Active Substance: QUETIAPINE FUMARATE
     Route: 065
     Dates: start: 20111026, end: 20141027
  3. EXELON [Concomitant]
     Active Substance: RIVASTIGMINE TARTRATE
     Route: 065
     Dates: start: 20140401, end: 20141027
  4. XARELTO [Suspect]
     Active Substance: RIVAROXABAN
     Indication: CEREBROVASCULAR ACCIDENT PROPHYLAXIS
     Route: 048
     Dates: start: 20140721, end: 20141026
  5. PAROXETINE [Concomitant]
     Active Substance: PAROXETINE\PAROXETINE HYDROCHLORIDE
     Indication: DEPRESSION
     Route: 065
     Dates: start: 20070301, end: 20141027
  6. BISOPROLOL HEMIFUMARATE [Concomitant]
     Active Substance: BISOPROLOL FUMARATE
     Indication: ATRIAL FIBRILLATION
     Route: 065
     Dates: start: 20110101, end: 20141027
  7. XARELTO [Suspect]
     Active Substance: RIVAROXABAN
     Indication: ATRIAL FIBRILLATION
     Route: 048
     Dates: start: 20140721, end: 20141026
  8. VITAMIN D3 [Concomitant]
     Active Substance: CHOLECALCIFEROL
     Route: 065
  9. OPTINATE [Concomitant]
     Active Substance: RISEDRONATE SODIUM
     Route: 065
  10. CALCIUM SANDOZ [Concomitant]
     Active Substance: CALCIUM
     Route: 065

REACTIONS (2)
  - Headache [Unknown]
  - Cerebral haematoma [Unknown]

NARRATIVE: CASE EVENT DATE: 20141027
